FAERS Safety Report 13880968 (Version 2)
Quarter: 2017Q3

REPORT INFORMATION
  Report Type: Spontaneous
  Country: SE (occurrence: SE)
  Receive Date: 20170818
  Receipt Date: 20170922
  Transmission Date: 20171127
  Serious: Yes (Other)
  Sender: FDA-Public Use
  Company Number: SE-BRISTOL-MYERS SQUIBB COMPANY-BMS-2017-073247

PATIENT
  Sex: Female

DRUGS (1)
  1. ELIQUIS [Suspect]
     Active Substance: APIXABAN
     Indication: PRODUCT USED FOR UNKNOWN INDICATION
     Dosage: 5 MG, UNK
     Route: 048

REACTIONS (3)
  - Glaucoma [Unknown]
  - Chromaturia [Unknown]
  - Cataract [Unknown]
